FAERS Safety Report 14224017 (Version 1)
Quarter: 2017Q4

REPORT INFORMATION
  Report Type: Spontaneous
  Country: US (occurrence: US)
  Receive Date: 20171122
  Receipt Date: 20171122
  Transmission Date: 20180321
  Serious: Yes (Hospitalization)
  Sender: FDA-Public Use
  Company Number: None

PATIENT
  Age: 50 Year
  Sex: Male
  Weight: 159.75 kg

DRUGS (6)
  1. C-PAP MACHINE [Concomitant]
     Active Substance: DEVICE
  2. NEXIUM [Concomitant]
     Active Substance: ESOMEPRAZOLE MAGNESIUM
  3. INDOMETHACIN. [Concomitant]
     Active Substance: INDOMETHACIN
  4. DILTIAZEM. [Concomitant]
     Active Substance: DILTIAZEM
  5. HUMIRA [Suspect]
     Active Substance: ADALIMUMAB
     Indication: PSORIATIC ARTHROPATHY
     Dosage: ?          QUANTITY:1 INJECTION(S);OTHER FREQUENCY:BI-WEEKLY;OTHER ROUTE:INJLECTION?
     Dates: start: 20170901, end: 20171114
  6. TOPIRAMATE. [Concomitant]
     Active Substance: TOPIRAMATE

REACTIONS (11)
  - Eructation [None]
  - Arthralgia [None]
  - Chest discomfort [None]
  - Pain in extremity [None]
  - Dyspnoea [None]
  - Joint swelling [None]
  - Lung disorder [None]
  - Pain in jaw [None]
  - Nerve injury [None]
  - Muscle injury [None]
  - Oesophageal spasm [None]

NARRATIVE: CASE EVENT DATE: 20171114
